FAERS Safety Report 7500391-9 (Version None)
Quarter: 2011Q2

REPORT INFORMATION
  Report Type: 
  Country: None (occurrence: None)
  Receive Date: 20110524
  Receipt Date: 20110217
  Transmission Date: 20111010
  Serious: No
  Sender: FDA-Public Use
  Company Number: US-BRISTOL-MYERS SQUIBB COMPANY-15497522

PATIENT
  Age: 69 Year
  Sex: Male

DRUGS (1)
  1. ONGLYZA [Suspect]
     Indication: DIABETES MELLITUS
     Dosage: RECEIVED FOR 1 AND HALF MONTH
     Route: 048
     Dates: start: 20100615

REACTIONS (1)
  - CARPAL TUNNEL SYNDROME [None]
